FAERS Safety Report 9549702 (Version 2)
Quarter: 2013Q3

REPORT INFORMATION
  Report Type: Spontaneous
  Country: JP (occurrence: JP)
  Receive Date: 20130924
  Receipt Date: 20130924
  Transmission Date: 20140515
  Serious: Yes (Other)
  Sender: FDA-Public Use
  Company Number: JP-TEVA-371152ISR

PATIENT
  Age: 22 Year
  Sex: Female

DRUGS (51)
  1. MODIODAL [Suspect]
     Indication: NARCOLEPSY
     Dosage: 300 MILLIGRAM DAILY;
     Route: 048
     Dates: start: 20080109, end: 20080305
  2. MODIODAL [Interacting]
     Indication: CATAPLEXY
     Dosage: 200 MILLIGRAM DAILY;
     Route: 048
     Dates: start: 20080305, end: 20080312
  3. MODIODAL [Interacting]
     Dosage: 100 MILLIGRAM DAILY;
     Route: 048
     Dates: start: 20080312, end: 20080319
  4. MODIODAL [Interacting]
     Dosage: 200 MILLIGRAM DAILY;
     Route: 048
     Dates: start: 20080327, end: 20080422
  5. MODIODAL [Interacting]
     Dosage: 300 MILLIGRAM DAILY;
     Route: 048
     Dates: start: 20080422, end: 20100831
  6. MODIODAL [Interacting]
     Dosage: 300 MILLIGRAM DAILY;
     Route: 048
     Dates: start: 20080312, end: 20080319
  7. ANAFRANIL [Suspect]
     Indication: CATAPLEXY
     Dosage: BEFORE BEDTIME
     Route: 048
     Dates: start: 20080109, end: 20080124
  8. ANAFRANIL [Suspect]
     Dosage: 35 MILLIGRAM DAILY; 2 DIVIDED DOSES: NOON AND BEFORE BEDTIME
     Route: 048
     Dates: start: 20080125, end: 20080305
  9. ANAFRANIL [Suspect]
     Dosage: 20 MILLIGRAM DAILY; BEFORE BEDTIME
     Route: 048
     Dates: start: 20080305, end: 20080311
  10. ANAFRANIL [Suspect]
     Route: 048
     Dates: start: 20080327, end: 20080401
  11. ANAFRANIL [Suspect]
     Dosage: 25 MILLIGRAM DAILY; BEFORE BEDTIME
     Route: 048
     Dates: start: 20080402, end: 20080421
  12. ANAFRANIL [Suspect]
     Dosage: BEFORE BEDTIME
     Route: 048
     Dates: start: 20080422, end: 20080519
  13. ANAFRANIL [Suspect]
     Dosage: EVENING AND BEFORE BEDTIME
     Route: 048
     Dates: start: 20080617, end: 20080812
  14. ANAFRANIL [Suspect]
     Route: 048
     Dates: start: 20090225, end: 20100405
  15. ANAFRANIL [Suspect]
     Dosage: 50 MILLIGRAM DAILY; BEFORE BEDTIME
     Route: 048
     Dates: start: 20100406, end: 20100719
  16. ANAFRANIL [Suspect]
     Dosage: 25 MILLIGRAM DAILY; BEFORE BEDTIME
     Route: 048
     Dates: start: 20100720, end: 20100802
  17. ANAFRANIL [Suspect]
     Dosage: BEFORE BEDTIME
     Route: 048
     Dates: start: 20100803, end: 20100830
  18. ANAFRANIL [Suspect]
     Route: 048
     Dates: start: 20080520, end: 20080617
  19. ANAFRANIL [Suspect]
     Dosage: 75 MILLIGRAM DAILY; 2 DIVIDED DOSES
     Route: 048
     Dates: start: 20080826, end: 20080909
  20. ANAFRANIL [Suspect]
     Dosage: EVENING AND BEFORE BEDTIME
     Route: 048
     Dates: start: 20080909, end: 20090113
  21. ANAFRANIL [Suspect]
     Dosage: 75 MILLIGRAM DAILY; 2 DIVIDED DOSES: EVENING AND BEFORE BEDTIME
     Route: 048
     Dates: start: 20090113, end: 20090225
  22. ANAFRANIL [Suspect]
     Dosage: 25 MILLIGRAM DAILY; BEFORE BEDTIME
     Route: 048
     Dates: start: 20090225
  23. RESLIN [Interacting]
     Indication: DEPRESSION
     Dosage: 25 MILLIGRAM DAILY;
     Dates: start: 20080701, end: 200807
  24. AMOBAN [Concomitant]
     Indication: NARCOLEPSY
     Dosage: 7.5 MILLIGRAM DAILY;
     Dates: start: 20080109, end: 200801
  25. AMOBAN [Concomitant]
     Indication: CATAPLEXY
  26. RITALIN [Concomitant]
     Indication: NARCOLEPSY
     Dates: start: 20080109, end: 20080208
  27. RITALIN [Concomitant]
     Indication: CATAPLEXY
     Dosage: 20 MILLIGRAM DAILY;
     Dates: start: 20080208, end: 20080319
  28. RITALIN [Concomitant]
     Dosage: 20 MILLIGRAM DAILY;
     Dates: start: 20080327, end: 20080422
  29. RITALIN [Concomitant]
     Dosage: 30 MILLIGRAM DAILY;
     Dates: start: 20080422, end: 20080716
  30. RITALIN [Concomitant]
     Dates: start: 20090414, end: 200907
  31. RITALIN [Concomitant]
     Dates: start: 20090707, end: 200907
  32. RITALIN [Concomitant]
     Dosage: 60 MILLIGRAM DAILY;
     Dates: start: 20090721, end: 20091104
  33. RITALIN [Concomitant]
     Dosage: 40 MILLIGRAM DAILY;
     Dates: start: 20091104, end: 20091117
  34. RITALIN [Concomitant]
     Dosage: 60 MILLIGRAM DAILY;
     Dates: start: 20091117, end: 20091201
  35. RITALIN [Concomitant]
     Dosage: 40 MILLIGRAM DAILY;
     Dates: start: 20091201, end: 20091215
  36. RITALIN [Concomitant]
     Dosage: 60 MILLIGRAM DAILY;
     Dates: start: 20091215, end: 20100406
  37. RITALIN [Concomitant]
     Dosage: 40 MILLIGRAM DAILY;
     Dates: start: 20100406, end: 20100512
  38. RITALIN [Concomitant]
     Dosage: 60 MILLIGRAM DAILY;
     Dates: start: 20100512, end: 20100831
  39. RITALIN [Concomitant]
     Dates: start: 20080701, end: 200807
  40. RITALIN [Concomitant]
     Dosage: 40 MILLIGRAM DAILY;
     Dates: start: 20080716, end: 20090331
  41. RITALIN [Concomitant]
     Dates: start: 20081209, end: 200904
  42. RITALIN [Concomitant]
     Dosage: 50 MILLIGRAM DAILY;
     Dates: start: 20090331, end: 20090414
  43. MYSLEE [Concomitant]
     Indication: NARCOLEPSY
     Dosage: 5 MILLIGRAM DAILY;
     Dates: start: 20080125, end: 200803
  44. MYSLEE [Concomitant]
     Indication: CATAPLEXY
     Dates: start: 20080327, end: 200804
  45. MYSLEE [Concomitant]
     Dosage: 5 MILLIGRAM DAILY;
     Dates: start: 20080327, end: 20080421
  46. MYSLEE [Concomitant]
     Dosage: 10 MILLIGRAM DAILY;
     Dates: start: 20091222, end: 20100118
  47. LENDORMIN [Concomitant]
     Indication: NARCOLEPSY
     Dosage: .25 MILLIGRAM DAILY;
     Dates: start: 20080402, end: 20080421
  48. LENDORMIN [Concomitant]
     Indication: CATAPLEXY
  49. SILECE [Concomitant]
     Indication: NARCOLEPSY
     Dosage: 1 MILLIGRAM DAILY;
     Dates: start: 20080422, end: 20090330
  50. SILECE [Concomitant]
     Indication: CATAPLEXY
  51. TSUMURA KAMISHOYOSAN EXTRACT GRANULES FOR ETHICAL USE (KAMISHOYOSAN) [Concomitant]
     Indication: DYSMENORRHOEA
     Dosage: 7.5 GRAM DAILY;
     Dates: start: 20080716, end: 20080826

REACTIONS (2)
  - Anaphylactic reaction [Recovered/Resolved]
  - Drug interaction [Recovered/Resolved]
